FAERS Safety Report 15673980 (Version 5)
Quarter: 2019Q2

REPORT INFORMATION
  Report Type: Report from Study
  Country: None (occurrence: CH)
  Receive Date: 20181129
  Receipt Date: 20190604
  Transmission Date: 20190711
  Serious: Yes (Hospitalization, Other)
  Sender: FDA-Public Use
  Company Number: CH-ABBVIE-18S-151-2569780-00

PATIENT
  Age: 79 Year
  Sex: Male

DRUGS (6)
  1. DUODOPA [Suspect]
     Active Substance: CARBIDOPA\LEVODOPA
     Dosage: MD 7ML;CR 4.5ML/H; ED 2ML?16H THERAPY
     Route: 050
     Dates: start: 20180816, end: 20180829
  2. DUODOPA [Suspect]
     Active Substance: CARBIDOPA\LEVODOPA
     Dosage: MD7 ML, CD 4.5 ML/H, ED 2 ML
     Route: 050
     Dates: start: 20180829
  3. DUODOPA [Suspect]
     Active Substance: CARBIDOPA\LEVODOPA
     Dosage: MD 7ML;CR 4.5ML/H; ED 1.5ML?16H THERAPY
     Route: 050
     Dates: start: 20180816, end: 20180829
  4. DUODOPA [Suspect]
     Active Substance: CARBIDOPA\LEVODOPA
     Indication: PARKINSON^S DISEASE
     Route: 050
     Dates: start: 20180313, end: 20180816
  5. DUODOPA [Suspect]
     Active Substance: CARBIDOPA\LEVODOPA
     Route: 050
  6. DUODOPA [Suspect]
     Active Substance: CARBIDOPA\LEVODOPA
     Dosage: MD 7ML, CD 4.5 ML/H, ED 1.5ML
     Route: 050
     Dates: start: 20180816, end: 20180829

REACTIONS (14)
  - Ulcer [Unknown]
  - Abdominal pain [Recovered/Resolved]
  - Hyperkinesia [Unknown]
  - Device issue [Recovered/Resolved]
  - Stoma site erythema [Not Recovered/Not Resolved]
  - Back pain [Recovered/Resolved]
  - Dyskinesia [Recovered/Resolved]
  - Stoma site hypergranulation [Recovering/Resolving]
  - Stoma site inflammation [Not Recovered/Not Resolved]
  - Chest pain [Recovered/Resolved]
  - Melanocytic naevus [Recovered/Resolved]
  - Device issue [Recovered/Resolved]
  - Haematochezia [Unknown]
  - Stoma site discharge [Not Recovered/Not Resolved]

NARRATIVE: CASE EVENT DATE: 2018
